FAERS Safety Report 10501168 (Version 1)
Quarter: 2014Q4

REPORT INFORMATION
  Report Type: Report from Study
  Country: EG (occurrence: EG)
  Receive Date: 20141007
  Receipt Date: 20141007
  Transmission Date: 20150528
  Serious: Yes (Life-Threatening, Other)
  Sender: FDA-Public Use
  Company Number: EG-ROCHE-1468225

PATIENT
  Sex: Male

DRUGS (9)
  1. PEGINTERFERON ALFA-2A [Suspect]
     Active Substance: PEGINTERFERON ALFA-2A
     Dosage: WEEK 12
     Route: 058
     Dates: start: 20081125
  2. RIBAVIRIN. [Suspect]
     Active Substance: RIBAVIRIN
     Dosage: WEEK 12
     Route: 048
     Dates: start: 20081125
  3. RIBAVIRIN. [Suspect]
     Active Substance: RIBAVIRIN
     Dosage: WEEK 24
     Route: 048
     Dates: start: 20090218
  4. RIBAVIRIN. [Suspect]
     Active Substance: RIBAVIRIN
     Dosage: WEEK 24
     Route: 048
     Dates: start: 20090805
  5. PEGINTERFERON ALFA-2A [Suspect]
     Active Substance: PEGINTERFERON ALFA-2A
     Dosage: WEEK 24
     Route: 058
     Dates: start: 20090210, end: 20090731
  6. RIBAVIRIN. [Suspect]
     Active Substance: RIBAVIRIN
     Indication: CHRONIC HEPATITIS C
     Route: 048
     Dates: start: 20080904
  7. PEGINTERFERON ALFA-2A [Suspect]
     Active Substance: PEGINTERFERON ALFA-2A
     Indication: CHRONIC HEPATITIS C
     Route: 058
     Dates: start: 20080904
  8. PEGINTERFERON ALFA-2A [Suspect]
     Active Substance: PEGINTERFERON ALFA-2A
     Dosage: WEEK 4
     Route: 058
     Dates: start: 20080929
  9. RIBAVIRIN. [Suspect]
     Active Substance: RIBAVIRIN
     Route: 048
     Dates: start: 20080929

REACTIONS (6)
  - Treatment failure [Unknown]
  - Leukopenia [Recovered/Resolved with Sequelae]
  - Influenza like illness [Recovered/Resolved]
  - Anaemia [Recovered/Resolved with Sequelae]
  - Neutropenia [Recovered/Resolved with Sequelae]
  - Jaundice [Recovered/Resolved]

NARRATIVE: CASE EVENT DATE: 20090602
